FAERS Safety Report 4490618-2 (Version None)
Quarter: 2004Q4

REPORT INFORMATION
  Report Type: 
  Country: None (occurrence: None)
  Receive Date: 20041027
  Receipt Date: 20041018
  Transmission Date: 20050328
  Serious: Yes (Other)
  Sender: FDA-Public Use
  Company Number: ESWYE011501SEP04

PATIENT
  Age: 70 Year
  Sex: Male

DRUGS (1)
  1. RAPAMUNE [Suspect]
     Indication: RENAL TRANSPLANT
     Dosage: 4 MG 1 X PER 24 HR
     Route: 048
     Dates: start: 20040331, end: 20040827

REACTIONS (5)
  - DRUG INEFFECTIVE [None]
  - GROIN PAIN [None]
  - MUSCULOSKELETAL PAIN [None]
  - PAIN IN EXTREMITY [None]
  - TENDON DISORDER [None]
